FAERS Safety Report 21040770 (Version 3)
Quarter: 2022Q3

REPORT INFORMATION
  Report Type: Spontaneous
  Country: BR (occurrence: BR)
  Receive Date: 20220704
  Receipt Date: 20220925
  Transmission Date: 20221027
  Serious: Yes (Death, Hospitalization, Other)
  Sender: FDA-Public Use
  Company Number: BR-BRISTOL-MYERS SQUIBB COMPANY-2022-063857

PATIENT
  Age: 69 Year
  Sex: Male

DRUGS (1)
  1. REVLIMID [Suspect]
     Active Substance: LENALIDOMIDE
     Indication: Plasma cell myeloma
     Dosage: TAKE FOR 21 DAYS, PAUSE FOR 7 DAYS (28 DAY CYCLE), DAILY
     Route: 065

REACTIONS (4)
  - Craniocerebral injury [Fatal]
  - Fall [Unknown]
  - Nervous system disorder [Unknown]
  - Off label use [Unknown]
